FAERS Safety Report 6692728-8 (Version None)
Quarter: 2010Q2

REPORT INFORMATION
  Report Type: 
  Country: None (occurrence: None)
  Receive Date: 20100422
  Receipt Date: 20100415
  Transmission Date: 20101027
  Serious: Yes (Other)
  Sender: FDA-Public Use
  Company Number: US-GILEAD-2010-0027254

PATIENT
  Sex: Male
  Weight: 90.8 kg

DRUGS (10)
  1. AMBRISENTAN [Suspect]
     Indication: IDIOPATHIC PULMONARY FIBROSIS
     Route: 048
     Dates: start: 20100119, end: 20100331
  2. AMBRISENTAN [Suspect]
     Route: 048
     Dates: start: 20091222, end: 20100104
  3. ASPIRIN [Concomitant]
     Indication: PROPHYLAXIS
  4. LANTUS [Concomitant]
     Indication: DIABETES MELLITUS
  5. LOVASTATIN [Concomitant]
     Indication: HYPERCHOLESTEROLAEMIA
  6. METOPROLOL TARTRATE [Concomitant]
     Indication: HYPERTENSION
  7. TYLENOL-500 [Concomitant]
  8. VICODIN [Concomitant]
  9. VITAMIN D [Concomitant]
  10. WARFARIN SODIUM [Concomitant]
     Indication: CARDIAC PACEMAKER INSERTION

REACTIONS (1)
  - HAEMOPTYSIS [None]
